FAERS Safety Report 10961996 (Version 2)
Quarter: 2015Q3

REPORT INFORMATION
  Report Type: Report from Study
  Country: US (occurrence: US)
  Receive Date: 20150327
  Receipt Date: 20150807
  Transmission Date: 20151125
  Serious: Yes (Other)
  Sender: FDA-Public Use
  Company Number: US-AMGEN-USASL2015027638

PATIENT
  Age: 56 Year
  Sex: Female

DRUGS (4)
  1. PENICILLIN                         /00000901/ [Suspect]
     Active Substance: PENICILLIN G
     Indication: SINUSITIS
     Dosage: UNK
     Route: 065
  2. PENICILLIN                         /00000901/ [Suspect]
     Active Substance: PENICILLIN G
     Indication: TENDERNESS
  3. PENICILLIN                         /00000901/ [Suspect]
     Active Substance: PENICILLIN G
     Indication: PARANASAL SINUS HYPERSECRETION
  4. ENBREL [Suspect]
     Active Substance: ETANERCEPT
     Indication: RHEUMATOID ARTHRITIS
     Dosage: 50 MG, QWK
     Route: 065
     Dates: start: 20140701

REACTIONS (13)
  - Carotid artery occlusion [Unknown]
  - Sinusitis [Not Recovered/Not Resolved]
  - Arthralgia [Unknown]
  - VIIth nerve paralysis [Not Recovered/Not Resolved]
  - Vomiting [Unknown]
  - Peripheral swelling [Unknown]
  - Herpes zoster [Not Recovered/Not Resolved]
  - Memory impairment [Unknown]
  - Transient ischaemic attack [Unknown]
  - Nausea [Unknown]
  - Cerebrovascular accident [Unknown]
  - Confusional state [Unknown]
  - Pain in extremity [Not Recovered/Not Resolved]

NARRATIVE: CASE EVENT DATE: 20141127
